FAERS Safety Report 4750159-1 (Version None)
Quarter: 2005Q3

REPORT INFORMATION
  Report Type: 
  Country: None (occurrence: None)
  Receive Date: 20050823
  Receipt Date: 20050620
  Transmission Date: 20060218
  Serious: Yes (Disabling, Other)
  Sender: FDA-Public Use
  Company Number: 200515749GDDC

PATIENT
  Age: 63 Year
  Sex: Female

DRUGS (7)
  1. TAXOTERE [Suspect]
     Indication: BREAST CANCER
     Route: 042
     Dates: start: 20011009, end: 20020130
  2. DOXORUBICIN HCL [Suspect]
     Indication: BREAST CANCER
     Route: 042
     Dates: start: 20011009, end: 20020130
  3. CYCLOPHOSPHAMIDE [Suspect]
     Indication: BREAST CANCER
     Route: 042
     Dates: start: 20011009, end: 20020130
  4. ARIMIDEX [Concomitant]
     Route: 048
     Dates: start: 20040316, end: 20050201
  5. TYLENOL [Concomitant]
     Indication: STRESS
     Dosage: DOSE: UNK
     Route: 048
     Dates: start: 20010901
  6. CIPROFLOXACIN [Concomitant]
     Route: 048
     Dates: start: 20021013, end: 20030212
  7. TAMOXIFEN CITRATE [Concomitant]
     Dosage: DOSE: UNK
     Dates: start: 20020201, end: 20040301

REACTIONS (6)
  - DIFFUSE LARGE B-CELL LYMPHOMA [None]
  - FATIGUE [None]
  - HYPERHIDROSIS [None]
  - PERSISTENT GENERALISED LYMPHADENOPATHY [None]
  - PYREXIA [None]
  - WEIGHT DECREASED [None]
